FAERS Safety Report 11976804 (Version 4)
Quarter: 2016Q2

REPORT INFORMATION
  Report Type: Spontaneous
  Country: BR (occurrence: BR)
  Receive Date: 20160129
  Receipt Date: 20160608
  Transmission Date: 20160815
  Serious: Yes (Other)
  Sender: FDA-Public Use
  Company Number: BR-JNJFOC-20160122829

PATIENT
  Sex: Female
  Weight: 93 kg

DRUGS (2)
  1. SIMPONI [Suspect]
     Active Substance: GOLIMUMAB
     Indication: RHEUMATOID ARTHRITIS
     Route: 058
     Dates: start: 20151116
  2. SIMPONI [Suspect]
     Active Substance: GOLIMUMAB
     Indication: FELTY^S SYNDROME
     Route: 058
     Dates: start: 20151116

REACTIONS (6)
  - Abasia [Unknown]
  - Depression [Unknown]
  - Joint swelling [Unknown]
  - Product use issue [Unknown]
  - Felty^s syndrome [Unknown]
  - Off label use [Unknown]
